FAERS Safety Report 9222044 (Version 2)
Quarter: 2013Q2

REPORT INFORMATION
  Report Type: Spontaneous
  Country: US (occurrence: US)
  Receive Date: 20130410
  Receipt Date: 20130502
  Transmission Date: 20140414
  Serious: No
  Sender: FDA-Public Use
  Company Number: US-PFIZER INC-2013111390

PATIENT
  Sex: Female

DRUGS (3)
  1. PRISTIQ [Suspect]
     Dosage: 100 MG, DAILY
  2. PRISTIQ [Suspect]
     Dosage: 50 MG, DAILY
  3. PRISTIQ [Suspect]
     Dosage: 50 MG, ALTERNATE DAY

REACTIONS (1)
  - Drug intolerance [Unknown]
